FAERS Safety Report 4502220-4 (Version None)
Quarter: 2004Q4

REPORT INFORMATION
  Report Type: 
  Country: None (occurrence: None)
  Receive Date: 20041116
  Receipt Date: 20040928
  Transmission Date: 20050328
  Serious: Yes (Other)
  Sender: FDA-Public Use
  Company Number: PHBS2004JP13075

PATIENT
  Age: 49 Year
  Sex: Female

DRUGS (4)
  1. VOLTAREN [Suspect]
     Indication: PERIARTHRITIS
     Dosage: 30 MG/DAY
     Route: 061
     Dates: start: 20040825, end: 20040911
  2. DICLOFENAC SODIUM [Concomitant]
     Indication: PERIARTHRITIS
     Dosage: 75 MG/DAY
     Route: 048
     Dates: start: 20040825, end: 20040903
  3. SELBEX [Concomitant]
     Indication: PERIARTHRITIS
     Dosage: 150 MG/DAY
     Route: 048
     Dates: start: 20040825, end: 20040903
  4. VOLTAREN [Concomitant]
     Indication: PERIARTHRITIS
     Dosage: 60 MG/DAY
     Route: 061
     Dates: start: 20040825, end: 20040903

REACTIONS (5)
  - APPLICATION SITE DERMATITIS [None]
  - APPLICATION SITE ERYTHEMA [None]
  - DERMATITIS [None]
  - OEDEMA PERIPHERAL [None]
  - PIGMENTATION DISORDER [None]
